FAERS Safety Report 19705237 (Version 3)
Quarter: 2022Q3

REPORT INFORMATION
  Report Type: Report from Study
  Country: DE (occurrence: DE)
  Receive Date: 20210816
  Receipt Date: 20220630
  Transmission Date: 20221027
  Serious: Yes (Hospitalization, Other)
  Sender: FDA-Public Use
  Company Number: NVSC2020DE221723

PATIENT
  Age: 64 Year
  Sex: Male
  Weight: 153 kg

DRUGS (4)
  1. COSENTYX [Suspect]
     Active Substance: SECUKINUMAB
     Indication: Psoriasis
     Dosage: 300 MG, QMO
     Route: 058
     Dates: start: 20181127
  2. TORSEMIDE [Concomitant]
     Active Substance: TORSEMIDE
     Indication: Product used for unknown indication
     Dosage: UNK
     Route: 065
  3. OXYCODONE [Concomitant]
     Active Substance: OXYCODONE
     Indication: Product used for unknown indication
     Dosage: 5 MG
     Route: 065
  4. HUMALOG MIX75/25 [Concomitant]
     Active Substance: INSULIN LISPRO
     Indication: Product used for unknown indication
     Dosage: 300 IU
     Route: 065

REACTIONS (23)
  - Urinary tract infection [Recovered/Resolved]
  - Cardiac failure [Recovered/Resolved]
  - Acute coronary syndrome [Unknown]
  - Dyspnoea [Unknown]
  - Acute myocardial infarction [Unknown]
  - Angina pectoris [Unknown]
  - Atrial fibrillation [Unknown]
  - Rectal haemorrhage [Unknown]
  - Thrombosis [Unknown]
  - Aortic arteriosclerosis [Recovered/Resolved]
  - Haematochezia [Recovered/Resolved]
  - Adenoma benign [Recovered/Resolved]
  - Dysuria [Unknown]
  - Urine output increased [Unknown]
  - Chromaturia [Unknown]
  - Oedema peripheral [Recovered/Resolved]
  - Anisocoria [Unknown]
  - Abnormal faeces [Unknown]
  - Anal incontinence [Unknown]
  - Cardiomegaly [Recovered/Resolved]
  - Diverticulum intestinal [Recovered/Resolved]
  - Hypercapnia [Recovered/Resolved]
  - Aortic elongation [Recovered/Resolved]

NARRATIVE: CASE EVENT DATE: 20200601
